FAERS Safety Report 24210085 (Version 2)
Quarter: 2024Q3

REPORT INFORMATION
  Report Type: Spontaneous
  Country: ES (occurrence: None)
  Receive Date: 20240814
  Receipt Date: 20240829
  Transmission Date: 20241017
  Serious: Yes (Other)
  Sender: ASTRAZENECA
  Company Number: 2024A179919

PATIENT
  Sex: Male

DRUGS (1)
  1. TICAGRELOR [Suspect]
     Active Substance: TICAGRELOR
     Indication: Myocardial infarction
     Dosage: 90.0MG UNKNOWN
     Route: 048

REACTIONS (5)
  - Myocardial infarction [Unknown]
  - Product residue present [Unknown]
  - Haematochezia [Unknown]
  - Drug ineffective [Unknown]
  - Product solubility abnormal [Unknown]
